FAERS Safety Report 4662581-2 (Version None)
Quarter: 2005Q2

REPORT INFORMATION
  Report Type: 
  Country: None (occurrence: None)
  Receive Date: 20050512
  Receipt Date: 20050502
  Transmission Date: 20051028
  Serious: Yes (Other)
  Sender: FDA-Public Use
  Company Number: DE-2005-004224

PATIENT
  Sex: Female

DRUGS (1)
  1. MIRENA [Suspect]
     Dosage: 20 MG/DAY, CONT, INTRA-UTERINE
     Route: 015
     Dates: start: 20050101

REACTIONS (1)
  - CHOLESTASIS [None]
